FAERS Safety Report 9108342 (Version 2)
Quarter: 2013Q2

REPORT INFORMATION
  Report Type: Spontaneous
  Country: US (occurrence: US)
  Receive Date: 20130222
  Receipt Date: 20130607
  Transmission Date: 20140414
  Serious: Yes (Hospitalization)
  Sender: FDA-Public Use
  Company Number: US-B.I. PHARMACEUTICALS,INC./RIDGEFIELD-2013-BI-04310BP

PATIENT
  Age: 65 Year
  Sex: Female
  Weight: 115.21 kg

DRUGS (20)
  1. PRADAXA [Suspect]
     Indication: ATRIAL FIBRILLATION
     Dosage: 150 MG
     Dates: start: 20110119, end: 20110215
  2. ACTOS [Concomitant]
     Dosage: 45 MG
  3. ASCORBIC ACID [Concomitant]
     Dosage: 500 MG
  4. ASPIRIN [Concomitant]
     Dosage: 81 MG
  5. CARDIZEM [Concomitant]
     Dosage: 180 MG
  6. FERATAB [Concomitant]
     Dosage: 975 MG
  7. FUROSEMIDE [Concomitant]
     Dosage: 60 MG
  8. LANOXIN [Concomitant]
     Dosage: 125 MG
  9. METFORMIN HCL [Concomitant]
     Dosage: 2000 MG
  10. METOPROLOL TARTRATE [Concomitant]
     Dosage: 50 MG
  11. NABUMETONE [Concomitant]
     Dosage: 1500 MG
     Route: 048
  12. OMEPRAZOLE [Concomitant]
     Dosage: 40 MG
  13. POTASSIUM CL ER [Concomitant]
     Dosage: 10 MEQ
  14. PREDNISONE [Concomitant]
     Dosage: 10 MG
     Route: 048
  15. RAMIPRIL [Concomitant]
     Dosage: 5 MG
  16. ROPINIROLE [Concomitant]
     Dosage: 1 MG
     Route: 048
  17. SIMVASTATIN [Concomitant]
     Dosage: 80 MG
     Route: 048
  18. SYMBICORT [Concomitant]
     Dosage: 1 MCG
  19. ZETIA [Concomitant]
     Dosage: 10 MG
  20. ZOLOFT [Concomitant]
     Dosage: 100 MG

REACTIONS (1)
  - Gastrointestinal haemorrhage [Unknown]
